FAERS Safety Report 13853931 (Version 2)
Quarter: 2017Q3

REPORT INFORMATION
  Report Type: Spontaneous
  Country: IE (occurrence: IE)
  Receive Date: 20170810
  Receipt Date: 20170821
  Transmission Date: 20171127
  Serious: Yes (Death, Hospitalization, Other)
  Sender: FDA-Public Use
  Company Number: IE-JNJFOC-20170808677

PATIENT
  Age: 9 Decade
  Sex: Female

DRUGS (3)
  1. XARELTO [Suspect]
     Active Substance: RIVAROXABAN
     Indication: CARDIAC DISORDER
     Route: 048
     Dates: start: 201412, end: 201607
  2. HEPARIN [Concomitant]
     Active Substance: HEPARIN SODIUM
     Route: 065
     Dates: start: 201607
  3. LEXAPRO [Concomitant]
     Active Substance: ESCITALOPRAM OXALATE
     Indication: ANXIETY
     Route: 065

REACTIONS (6)
  - Coronary arterial stent insertion [Unknown]
  - Off label use [Unknown]
  - Peripheral artery thrombosis [Unknown]
  - Coma [Unknown]
  - Cerebrovascular accident [Fatal]
  - Product use in unapproved indication [Unknown]
